FAERS Safety Report 14020099 (Version 1)
Quarter: 2017Q3

REPORT INFORMATION
  Report Type: Spontaneous
  Country: JP (occurrence: JP)
  Receive Date: 20170928
  Receipt Date: 20170928
  Transmission Date: 20171128
  Serious: Yes (Other)
  Sender: FDA-Public Use
  Company Number: PHJP2017JP029323

PATIENT
  Age: 13 Year
  Sex: Male

DRUGS (1)
  1. CARBAMAZEPINE. [Suspect]
     Active Substance: CARBAMAZEPINE
     Indication: PAROXYSMAL CHOREOATHETOSIS
     Dosage: UNK
     Route: 048

REACTIONS (5)
  - Generalised tonic-clonic seizure [Unknown]
  - Rash [Unknown]
  - Pyrexia [Unknown]
  - Product use in unapproved indication [Unknown]
  - Drug eruption [Unknown]
